FAERS Safety Report 4945715-1 (Version None)
Quarter: 2006Q1

REPORT INFORMATION
  Report Type: 
  Country: None (occurrence: None)
  Receive Date: 20060316
  Receipt Date: 20060113
  Transmission Date: 20060701
  Serious: Yes (Hospitalization, Other)
  Sender: FDA-Public Use
  Company Number: PHEH2006US00946

PATIENT
  Age: 77 Year
  Sex: Female
  Weight: 43 kg

DRUGS (9)
  1. SINEMET [Concomitant]
     Indication: PARKINSON'S DISEASE
     Dosage: 2 TABS @ 7AM AND 11AM
     Route: 048
  2. SINEMET [Concomitant]
     Dosage: 1.5 TABS @2P, 5PM, 8PM, 11PM
     Route: 048
  3. AMANTADINE HCL [Concomitant]
     Dosage: 100 MG, BID
     Route: 048
  4. REMERON [Concomitant]
     Dosage: 15 MG, QHS
     Route: 048
  5. PAXIL [Concomitant]
     Dosage: 10 MG, QD
     Route: 048
  6. SEROQUEL [Concomitant]
     Dosage: UNK, UNK
  7. PREDNISONE [Suspect]
  8. COMTAN [Suspect]
     Indication: PARKINSON'S DISEASE
     Dosage: 200 MG, Q3H WHILE AWAKE FOR TOTAL OF 5 DOSES
     Route: 048
     Dates: start: 20050101
  9. FOSAMAX [Concomitant]
     Dosage: 70 MG, QW
     Route: 048

REACTIONS (8)
  - BLOOD BILIRUBIN INCREASED [None]
  - BLOOD LACTATE DEHYDROGENASE INCREASED [None]
  - HAEMATOCRIT DECREASED [None]
  - HAEMOGLOBIN DECREASED [None]
  - HAEMOLYTIC ANAEMIA [None]
  - MEAN CELL VOLUME INCREASED [None]
  - PANCYTOPENIA [None]
  - RED BLOOD CELL COUNT DECREASED [None]
